FAERS Safety Report 4896814-4 (Version None)
Quarter: 2006Q1

REPORT INFORMATION
  Report Type: 
  Country: None (occurrence: None)
  Receive Date: 20060126
  Receipt Date: 20060112
  Transmission Date: 20060701
  Serious: Yes (Death, Hospitalization)
  Sender: FDA-Public Use
  Company Number: 210162

PATIENT
  Age: 75 Year
  Sex: Female
  Weight: 59 kg

DRUGS (13)
  1. RITUXIMAB (RITUXIMAB) CONC FOR SOLUTION FOR INFUSION [Suspect]
     Indication: CHRONIC LYMPHOCYTIC LEUKAEMIA
     Dosage: 650 MG/M2, INTRAVENOUS
     Route: 042
     Dates: start: 20040906, end: 20041004
  2. FLUDARABINE PHOSPHATE [Suspect]
     Indication: CHRONIC LYMPHOCYTIC LEUKAEMIA
     Dosage: 25 MG/M2, INTRAVENOUS
     Route: 042
     Dates: start: 20040906, end: 20041006
  3. CYCLOPHOSPHAMIDE [Suspect]
     Dosage: 250 MG/M2, INTRAVENOUS
     Route: 042
     Dates: start: 20040906, end: 20041006
  4. ATENOLOL [Concomitant]
  5. DILTIAZEM HYDROCHLORIDE [Concomitant]
  6. ALLOPURINOL [Concomitant]
  7. BACTRIM DS [Concomitant]
  8. DEXAMETHASONE [Concomitant]
  9. TROPISETRON (TROPISETRON HYDROCHLORIDE) [Concomitant]
  10. ACETAMINOPHEN [Concomitant]
  11. PROMETHEZINE HCL [Concomitant]
  12. HEPARIN [Concomitant]
  13. OMEPRAZOLE [Concomitant]

REACTIONS (14)
  - ATELECTASIS [None]
  - CONSTIPATION [None]
  - CYTOMEGALOVIRUS ANTIBODY POSITIVE [None]
  - ENCEPHALITIS HERPES [None]
  - EPSTEIN-BARR VIRUS ANTIBODY POSITIVE [None]
  - GENERAL PHYSICAL HEALTH DETERIORATION [None]
  - HAEMOGLOBIN DECREASED [None]
  - LEFT VENTRICULAR FAILURE [None]
  - NEUTROPENIA [None]
  - PLEURAL EFFUSION [None]
  - PNEUMONIA HERPES VIRAL [None]
  - PULMONARY OEDEMA [None]
  - THROMBOCYTOPENIA [None]
  - WHITE BLOOD CELL COUNT DECREASED [None]
